FAERS Safety Report 10236912 (Version 1)
Quarter: 2014Q2

REPORT INFORMATION
  Report Type: Spontaneous
  Country: PT (occurrence: PT)
  Receive Date: 20140613
  Receipt Date: 20140613
  Transmission Date: 20141212
  Serious: Yes (Hospitalization, Other)
  Sender: FDA-Public Use
  Company Number: PT-ABBVIE-14P-130-1244986-00

PATIENT
  Age: 25 Year
  Sex: Female

DRUGS (7)
  1. HUMIRA [Suspect]
     Indication: CROHN^S DISEASE
     Dosage: INDUCTION DOSE WEEK 0
     Dates: start: 2007, end: 2007
  2. HUMIRA [Suspect]
     Dosage: MAINTENANCE DOSE
     Dates: start: 2007
  3. HUMIRA [Suspect]
     Dates: start: 200907
  4. HUMIRA [Suspect]
     Dates: start: 201010, end: 201405
  5. HUMIRA [Suspect]
     Dates: start: 201405
  6. METRONIDAZOLE [Concomitant]
     Indication: PRODUCT USED FOR UNKNOWN INDICATION
     Dates: start: 201009
  7. AZATHIOPRINE [Concomitant]
     Indication: PRODUCT USED FOR UNKNOWN INDICATION
     Dates: start: 201009

REACTIONS (9)
  - Abdominal distension [Recovered/Resolved]
  - Abdominal pain [Recovered/Resolved]
  - Vomiting [Recovered/Resolved]
  - Diarrhoea [Recovered/Resolved]
  - Crohn^s disease [Recovered/Resolved]
  - Abdominal pain [Recovered/Resolved]
  - Diarrhoea [Recovered/Resolved]
  - Vomiting [Recovered/Resolved]
  - Crohn^s disease [Unknown]
